FAERS Safety Report 9921125 (Version 1)
Quarter: 2014Q1

REPORT INFORMATION
  Report Type: Report from Study
  Country: US (occurrence: US)
  Receive Date: 20140225
  Receipt Date: 20140225
  Transmission Date: 20141002
  Serious: Yes (Other)
  Sender: FDA-Public Use
  Company Number: US-ROCHE-1335527

PATIENT
  Age: 33 Year
  Sex: Male

DRUGS (8)
  1. LUCENTIS [Suspect]
     Indication: RETINAL VEIN OCCLUSION
     Route: 050
     Dates: start: 20101116
  2. LUCENTIS [Suspect]
     Indication: MACULAR OEDEMA
     Route: 050
     Dates: start: 20110329
  3. LUCENTIS [Suspect]
     Route: 050
     Dates: start: 20110503
  4. LUCENTIS [Suspect]
     Route: 050
     Dates: start: 20110707
  5. AVASTIN [Suspect]
     Indication: PRODUCT USED FOR UNKNOWN INDICATION
     Route: 065
     Dates: start: 20100702, end: 201011
  6. ASPIRIN [Concomitant]
     Route: 065
  7. ACUVAIL [Concomitant]
     Route: 065
     Dates: start: 20111025
  8. TRIESENCE [Concomitant]
     Route: 065
     Dates: start: 20100901

REACTIONS (4)
  - Macular oedema [Unknown]
  - Vitreous adhesions [Unknown]
  - Ocular hypertension [Recovered/Resolved]
  - Macular fibrosis [Unknown]
